FAERS Safety Report 25032937 (Version 1)
Quarter: 2025Q1

REPORT INFORMATION
  Report Type: Report from Study
  Country: US (occurrence: US)
  Receive Date: 20250303
  Receipt Date: 20250303
  Transmission Date: 20250409
  Serious: Yes (Other)
  Sender: PFIZER
  Company Number: US-PFIZER INC-202500046043

PATIENT
  Age: 76 Year
  Sex: Male

DRUGS (3)
  1. BRAFTOVI [Suspect]
     Active Substance: ENCORAFENIB
     Dosage: THREE 75MG CAPSULES DAILY
  2. MEKTOVI [Suspect]
     Active Substance: BINIMETINIB
     Dosage: 30 MG, 2X/DAY
  3. EZETIMIBE [Concomitant]
     Active Substance: EZETIMIBE

REACTIONS (7)
  - Colitis [Not Recovered/Not Resolved]
  - Arrhythmia [Not Recovered/Not Resolved]
  - Renal failure [Not Recovered/Not Resolved]
  - Nasal disorder [Not Recovered/Not Resolved]
  - Myalgia [Not Recovered/Not Resolved]
  - Arthralgia [Not Recovered/Not Resolved]
  - Fatigue [Not Recovered/Not Resolved]
